FAERS Safety Report 8391161-0 (Version None)
Quarter: 2012Q2

REPORT INFORMATION
  Report Type: 
  Country: None (occurrence: None)
  Receive Date: 20120529
  Receipt Date: 20120515
  Transmission Date: 20120825
  Serious: Yes (Other)
  Sender: FDA-Public Use
  Company Number: GB-ELI_LILLY_AND_COMPANY-GB201205005482

PATIENT
  Sex: Male

DRUGS (2)
  1. STRATTERA [Suspect]
     Dosage: 1 DF, UNK
     Dates: start: 20110201
  2. STRATTERA [Suspect]
     Dosage: 35 MG, UNK
     Dates: start: 20110301

REACTIONS (1)
  - MUSCLE SPASMS [None]
